FAERS Safety Report 5022492-X (Version None)
Quarter: 2006Q2

REPORT INFORMATION
  Report Type: 
  Country: None (occurrence: None)
  Receive Date: 20060605
  Receipt Date: 20060526
  Transmission Date: 20061013
  Serious: Yes (Hospitalization)
  Sender: FDA-Public Use
  Company Number: 2006059686

PATIENT
  Age: 90 Year
  Sex: Female
  Weight: 60 kg

DRUGS (12)
  1. NORVASC [Suspect]
     Indication: ILL-DEFINED DISORDER
     Dosage: 10 MG (10 MG, 1 IN 24 HR), ORAL
     Route: 048
     Dates: start: 20040815
  2. CARBAMAZEPINE [Suspect]
     Indication: TRIGEMINAL NEURALGIA
     Dosage: 400 MG (200 MG, 1 IN 12 HR), ORAL
     Route: 048
     Dates: start: 19980101, end: 20040826
  3. ATACAND [Suspect]
     Indication: ESSENTIAL HYPERTENSION
     Dosage: 16 MG (16 MG, 1 IN 24 HR), ORAL
     Route: 048
     Dates: start: 20040807, end: 20040812
  4. ATACAND HCT [Suspect]
     Indication: ILL-DEFINED DISORDER
     Dosage: 16 MG (16 MG, 1 IN 24 HR), ORAL
     Route: 048
     Dates: start: 20040813, end: 20040824
  5. CARVEDILOL [Suspect]
     Indication: ILL-DEFINED DISORDER
     Dosage: 12.5 MG (6.25 MG, 1 IN 12 HR), ORAL
     Route: 048
     Dates: start: 20040806, end: 20040821
  6. TORSEMIDE [Suspect]
     Indication: ILL-DEFINED DISORDER
     Dosage: 5 MG (5 MG, 1 IN 24 HR), ORAL
     Route: 048
     Dates: end: 20040820
  7. NITRODERM [Concomitant]
  8. CLONAZEPAM [Concomitant]
  9. PLAVIX [Concomitant]
  10. TOLVON (MIANSERIN HYDROCHLORIDE) [Concomitant]
  11. SELIPRAN (PRAVASTATIN SODIUM) [Concomitant]
  12. ZOLPIDEM TARTRATE [Concomitant]

REACTIONS (4)
  - CONDITION AGGRAVATED [None]
  - DRUG INEFFECTIVE [None]
  - DRUG INTERACTION [None]
  - HYPERTENSION [None]
